FAERS Safety Report 5328320-7 (Version None)
Quarter: 2007Q2

REPORT INFORMATION
  Report Type: 
  Country: None (occurrence: None)
  Receive Date: 20070518
  Receipt Date: 20070507
  Transmission Date: 20071010
  Serious: Yes (Other)
  Sender: FDA-Public Use
  Company Number: PHHO2006BR08985

PATIENT
  Age: 61 Year
  Sex: Female
  Weight: 67 kg

DRUGS (2)
  1. TRILEPTAL [Suspect]
     Indication: CONVULSION
     Dosage: 300MG (AM + PM)
     Route: 048
  2. TEGRETOL [Suspect]
     Indication: CONVULSION
     Route: 048

REACTIONS (10)
  - CONVULSION [None]
  - CRYING [None]
  - DEPRESSION [None]
  - EMOTIONAL DISORDER [None]
  - FALL [None]
  - HEAD INJURY [None]
  - INSOMNIA [None]
  - MEMORY IMPAIRMENT [None]
  - PETIT MAL EPILEPSY [None]
  - TREMOR [None]
